FAERS Safety Report 22247131 (Version 1)
Quarter: 2023Q2

REPORT INFORMATION
  Report Type: Spontaneous
  Country: AU (occurrence: AU)
  Receive Date: 20230424
  Receipt Date: 20230424
  Transmission Date: 20230722
  Serious: Yes (Other)
  Sender: FDA-Public Use
  Company Number: AU-BRISTOL-MYERS SQUIBB COMPANY-2023-057252

PATIENT
  Age: 55 Year
  Sex: Female

DRUGS (12)
  1. THALIDOMIDE [Suspect]
     Active Substance: THALIDOMIDE
     Indication: Neutrophilic dermatosis
  2. BETAMETHASONE DIPROPIONATE [Suspect]
     Active Substance: BETAMETHASONE DIPROPIONATE
     Indication: Neutrophilic dermatosis
  3. CYCLOSPORINE [Suspect]
     Active Substance: CYCLOSPORINE
     Indication: Neutrophilic dermatosis
  4. HYDROXYCHLOROQUINE SULFATE [Suspect]
     Active Substance: HYDROXYCHLOROQUINE SULFATE
     Indication: Neutrophilic dermatosis
  5. METHOTREXATE [Suspect]
     Active Substance: METHOTREXATE
     Indication: Neutrophilic dermatosis
  6. PREDNISOLONE [Suspect]
     Active Substance: PREDNISOLONE
     Indication: Neutrophilic dermatosis
  7. INDOMETHACIN [Suspect]
     Active Substance: INDOMETHACIN
     Indication: Neutrophilic dermatosis
  8. ANAKINRA [Concomitant]
     Active Substance: ANAKINRA
     Indication: Neutrophilic dermatosis
  9. COLCHICINE [Concomitant]
     Active Substance: COLCHICINE
     Indication: Neutrophilic dermatosis
  10. CYCLOPHOSPHAMIDE [Concomitant]
     Active Substance: CYCLOPHOSPHAMIDE
     Indication: Neutrophilic dermatosis
  11. DAPSONE [Concomitant]
     Active Substance: DAPSONE
     Indication: Neutrophilic dermatosis
  12. POTASSIUM IODIDE [Concomitant]
     Active Substance: POTASSIUM IODIDE
     Indication: Neutrophilic dermatosis

REACTIONS (7)
  - Depression [Unknown]
  - Drug ineffective [Unknown]
  - Hip fracture [Unknown]
  - Insomnia [Unknown]
  - Spinal fracture [Unknown]
  - Weight increased [Unknown]
  - Off label use [Unknown]
